FAERS Safety Report 6371335-0 (Version None)
Quarter: 2009Q3

REPORT INFORMATION
  Report Type: 
  Country: None (occurrence: None)
  Receive Date: 20090923
  Receipt Date: 20090911
  Transmission Date: 20100115
  Serious: Yes (Hospitalization, Other)
  Sender: FDA-Public Use
  Company Number: DE-ELI_LILLY_AND_COMPANY-DE200909002788

PATIENT
  Age: 65 Year
  Sex: Female

DRUGS (13)
  1. FORTEO [Suspect]
     Dosage: UNK, UNKNOWN
     Route: 058
     Dates: end: 20090801
  2. FORTEO [Suspect]
     Dosage: UNK, UNKNOWN
     Route: 058
     Dates: start: 20090801, end: 20090825
  3. CALCIUM [Concomitant]
     Dosage: UNK, UNKNOWN
     Route: 065
  4. VITAMIN D [Concomitant]
     Dosage: UNK, UNKNOWN
     Route: 065
  5. FOSAMAX [Concomitant]
     Dosage: UNK, UNKNOWN
     Route: 065
  6. TRAMADOL HCL [Concomitant]
     Indication: PAIN
     Dosage: UNK, UNKNOWN
     Route: 065
  7. LYRICA [Concomitant]
     Indication: PAIN
     Dosage: UNK, UNKNOWN
     Route: 065
  8. METOHEXAL [Concomitant]
     Indication: PAIN
     Dosage: UNK, UNKNOWN
     Route: 065
  9. ATACAND [Concomitant]
     Indication: PAIN
     Dosage: UNK, UNKNOWN
     Route: 065
  10. TAMBOCOR [Concomitant]
     Indication: PAIN
     Dosage: UNK, UNKNOWN
     Route: 065
  11. QUENSYL [Concomitant]
     Indication: PAIN
     Dosage: UNK, UNKNOWN
     Route: 065
  12. BUDENOFALK [Concomitant]
     Indication: PAIN
     Dosage: UNK, UNKNOWN
     Route: 065
  13. PREDNISOLONE [Concomitant]
     Indication: PAIN
     Dosage: UNK, UNKNOWN
     Route: 065

REACTIONS (12)
  - ARTHRALGIA [None]
  - ASTHENIA [None]
  - CERVICAL SPINAL STENOSIS [None]
  - DYSPNOEA [None]
  - FATIGUE [None]
  - HYPERHIDROSIS [None]
  - LUMBAR SPINAL STENOSIS [None]
  - MUSCLE SPASMS [None]
  - MYALGIA [None]
  - NEURALGIA [None]
  - RED BLOOD CELL COUNT DECREASED [None]
  - SYNCOPE [None]
